FAERS Safety Report 6110086-4 (Version None)
Quarter: 2009Q1

REPORT INFORMATION
  Report Type: 
  Country: None (occurrence: None)
  Receive Date: 20090310
  Receipt Date: 20090223
  Transmission Date: 20090719
  Serious: Yes (Life-Threatening, Hospitalization, Disabling)
  Sender: FDA-Public Use
  Company Number: DE-GENENTECH-276650

PATIENT
  Sex: Male

DRUGS (5)
  1. BEVACIZUMAB [Suspect]
     Indication: NON-SMALL CELL LUNG CANCER
     Dosage: 900 MG, UNK
     Route: 042
     Dates: end: 20090106
  2. CARBOPLATIN [Suspect]
     Indication: NON-SMALL CELL LUNG CANCER
     Dosage: 650 MG, UNK
     Route: 042
     Dates: end: 20090106
  3. VINORELBINE [Suspect]
     Indication: NON-SMALL CELL LUNG CANCER
     Dosage: 70 MG, UNK
     Route: 042
     Dates: end: 20090106
  4. GRANISETRON [Concomitant]
     Indication: NAUSEA
     Dosage: 3 MG, UNK
     Dates: end: 20090106
  5. MORPHINE [Suspect]

REACTIONS (15)
  - AORTIC ARTERIOSCLEROSIS [None]
  - EMBOLIC CEREBRAL INFARCTION [None]
  - ENDOCARDITIS [None]
  - HEMIPARESIS [None]
  - JUGULAR VEIN THROMBOSIS [None]
  - MEDIASTINAL MASS [None]
  - METASTASES TO ADRENALS [None]
  - METASTASES TO LUNG [None]
  - NEOPLASM PROGRESSION [None]
  - OESOPHAGEAL CANDIDIASIS [None]
  - ORAL CANDIDIASIS [None]
  - PULMONARY CONGESTION [None]
  - SEPSIS [None]
  - SPLENIC INFARCTION [None]
  - TACHYCARDIA [None]
